FAERS Safety Report 9000539 (Version 1)
Quarter: 2013Q1

REPORT INFORMATION
  Report Type: Spontaneous
  Country: DK (occurrence: DK)
  Receive Date: 20130107
  Receipt Date: 20130107
  Transmission Date: 20140127
  Serious: Yes (Other)
  Sender: FDA-Public Use
  Company Number: DK-009507513-1211DNK011832

PATIENT
  Age: 39 Year
  Sex: Female

DRUGS (3)
  1. REMERON [Suspect]
  2. TRUXAL (CHLORPROTHIXENE) [Concomitant]
     Dosage: FOR SHORT PERIODS
  3. IMOZOP [Concomitant]
     Dosage: FOR SHORT PERIODS, NOT FIXED

REACTIONS (9)
  - Breast cancer [Unknown]
  - Tooth disorder [Unknown]
  - Dental caries [Unknown]
  - Dry mouth [Unknown]
  - Therapeutic response unexpected [Unknown]
  - Therapeutic response unexpected [Unknown]
  - Therapeutic response unexpected [Unknown]
  - Therapeutic response unexpected [Unknown]
  - Therapeutic response unexpected [Unknown]
